FAERS Safety Report 8859936 (Version 1)
Quarter: 2012Q4

REPORT INFORMATION
  Report Type: 
  Country: JP (occurrence: JP)
  Receive Date: 20121025
  Receipt Date: 20121025
  Transmission Date: 20130627
  Serious: Yes (Other)
  Sender: FDA-Public Use
  Company Number: JP-ELI_LILLY_AND_COMPANY-JP201210006719

PATIENT
  Age: 79 Year
  Sex: Female

DRUGS (5)
  1. EVISTA [Suspect]
     Route: 048
  2. ENBREL [Concomitant]
     Indication: RHEUMATOID ARTHRITIS
     Route: 058
  3. CRESTOR [Concomitant]
     Route: 048
  4. ONE-ALPHA [Concomitant]
     Route: 048
  5. LANSOPRAZOLE [Concomitant]
     Route: 048

REACTIONS (1)
  - Liver disorder [Recovered/Resolved]
